FAERS Safety Report 23091511 (Version 2)
Quarter: 2023Q4

REPORT INFORMATION
  Report Type: Spontaneous
  Country: US (occurrence: US)
  Receive Date: 20231020
  Receipt Date: 20231024
  Transmission Date: 20240109
  Serious: Yes (Life-Threatening, Hospitalization, Other)
  Sender: FDA-Public Use
  Company Number: US-MLMSERVICE-20231005-4587863-1

PATIENT
  Age: 39 Year
  Sex: Male

DRUGS (13)
  1. PROPOFOL [Suspect]
     Active Substance: PROPOFOL
     Indication: Drug withdrawal syndrome
     Dosage: DAILY CONTINUOUS INFUSION
  2. PROPOFOL [Suspect]
     Active Substance: PROPOFOL
     Indication: Alcohol withdrawal syndrome
  3. LORAZEPAM [Concomitant]
     Active Substance: LORAZEPAM
     Indication: Alcohol withdrawal syndrome
     Dosage: UNK, AS NEEDED
  4. KETAMINE [Concomitant]
     Active Substance: KETAMINE
     Indication: Alcohol withdrawal syndrome
     Dosage: CONTINUOUS
  5. KETAMINE [Concomitant]
     Active Substance: KETAMINE
     Indication: Sedative therapy
  6. KETAMINE [Concomitant]
     Active Substance: KETAMINE
     Indication: Withdrawal syndrome
  7. QUETIAPINE [Concomitant]
     Active Substance: QUETIAPINE
     Indication: Withdrawal syndrome
     Dosage: CONTINUOUS
  8. FENTANYL [Concomitant]
     Active Substance: FENTANYL\FENTANYL CITRATE
     Indication: Sedative therapy
     Dosage: CONTINUOUS
  9. FENTANYL [Concomitant]
     Active Substance: FENTANYL\FENTANYL CITRATE
     Indication: Withdrawal syndrome
  10. FENTANYL [Concomitant]
     Active Substance: FENTANYL\FENTANYL CITRATE
     Indication: Alcohol withdrawal syndrome
  11. MIDAZOLAM [Concomitant]
     Active Substance: MIDAZOLAM
     Indication: Alcohol withdrawal syndrome
     Dosage: UNK
  12. MIDAZOLAM [Concomitant]
     Active Substance: MIDAZOLAM
     Indication: Sedative therapy
  13. HALOPERIDOL [Concomitant]
     Active Substance: HALOPERIDOL
     Indication: Alcohol withdrawal syndrome
     Dosage: UNK

REACTIONS (3)
  - Off label use [Unknown]
  - Drug ineffective for unapproved indication [Unknown]
  - Propofol infusion syndrome [Unknown]
